FAERS Safety Report 13500345 (Version 1)
Quarter: 2017Q2

REPORT INFORMATION
  Report Type: Spontaneous
  Country: US (occurrence: US)
  Receive Date: 20170501
  Receipt Date: 20170501
  Transmission Date: 20170830
  Serious: Yes (Hospitalization)
  Sender: FDA-Public Use
  Company Number: US-INCYTE CORPORATION-2017IN003388

PATIENT
  Age: 95 Year
  Sex: Female

DRUGS (1)
  1. JAKAFI [Suspect]
     Active Substance: RUXOLITINIB
     Indication: MYELOFIBROSIS
     Dosage: 10 MG, BID (TWICE DAILY)
     Route: 048
     Dates: start: 20160805

REACTIONS (3)
  - Asthenia [Unknown]
  - Mobility decreased [Unknown]
  - Wheelchair user [Unknown]

NARRATIVE: CASE EVENT DATE: 20170331
